FAERS Safety Report 4786876-7 (Version None)
Quarter: 2005Q3

REPORT INFORMATION
  Report Type: 
  Country: None (occurrence: None)
  Receive Date: 20050930
  Receipt Date: 20050930
  Transmission Date: 20060218
  Serious: Yes (Other)
  Sender: FDA-Public Use
  Company Number: None

PATIENT
  Age: 31 Year
  Sex: Male
  Weight: 77.1115 kg

DRUGS (3)
  1. AMIFOSTINE [Suspect]
     Indication: DRY MOUTH
     Dosage: 500 MG SQ DAILY M-F PRIOR TO RT
     Dates: start: 20050809, end: 20050928
  2. AMIFOSTINE [Suspect]
     Indication: MUCOSAL INFLAMMATION
     Dosage: 500 MG SQ DAILY M-F PRIOR TO RT
     Dates: start: 20050809, end: 20050928
  3. AMIFOSTINE [Suspect]
     Indication: NEOPLASM MALIGNANT
     Dosage: 500 MG SQ DAILY M-F PRIOR TO RT
     Dates: start: 20050809, end: 20050928

REACTIONS (1)
  - RASH MACULO-PAPULAR [None]
